FAERS Safety Report 13627959 (Version 1)
Quarter: 2017Q2

REPORT INFORMATION
  Report Type: Spontaneous
  Country: US (occurrence: US)
  Receive Date: 20170607
  Receipt Date: 20170607
  Transmission Date: 20170830
  Serious: No
  Sender: FDA-Public Use
  Company Number: None

PATIENT
  Age: 46 Year
  Sex: Female
  Weight: 103.5 kg

DRUGS (16)
  1. GLIPIZIDE. [Concomitant]
     Active Substance: GLIPIZIDE
  2. CYCLOBENZIPRINE [Concomitant]
  3. GLIPIZIDE. [Suspect]
     Active Substance: GLIPIZIDE
     Indication: DIABETES MELLITUS
     Dosage: ?          QUANTITY:180 TABLET(S);?
     Route: 048
  4. AMLOOPINE [Concomitant]
  5. INVOKANA [Concomitant]
     Active Substance: CANAGLIFLOZIN
  6. OMEPROLE [Concomitant]
  7. LEVOTHYROXIN [Concomitant]
     Active Substance: LEVOTHYROXINE
  8. STRATTERA [Concomitant]
     Active Substance: ATOMOXETINE HYDROCHLORIDE
  9. VITAMIN B12 [Concomitant]
     Active Substance: CYANOCOBALAMIN
  10. ALSOPRASALAM [Concomitant]
  11. INVOKANA [Suspect]
     Active Substance: CANAGLIFLOZIN
     Indication: DIABETES MELLITUS
     Dosage: ?          QUANTITY:90 TABLET(S);?
     Route: 048
  12. PRAZOSIN. [Concomitant]
     Active Substance: PRAZOSIN
  13. LEVAMIRE [Concomitant]
  14. PRIMEROSE OIL [Concomitant]
  15. SERTRILINE [Concomitant]
  16. LIVALO [Concomitant]
     Active Substance: PITAVASTATIN CALCIUM

REACTIONS (6)
  - Drug ineffective [None]
  - Liquid product physical issue [None]
  - Blood glucose increased [None]
  - Product substitution issue [None]
  - Inability to afford medication [None]
  - Treatment noncompliance [None]

NARRATIVE: CASE EVENT DATE: 20161230
